FAERS Safety Report 6346701-X (Version None)
Quarter: 2009Q3

REPORT INFORMATION
  Report Type: 
  Country: None (occurrence: None)
  Receive Date: 20090904
  Receipt Date: 20090823
  Transmission Date: 20100115
  Serious: Yes (Other)
  Sender: FDA-Public Use
  Company Number: DSM-2009-01237

PATIENT
  Age: 67 Year
  Sex: Male
  Weight: 85 kg

DRUGS (2)
  1. SEVIKAR (OLMESARTAN MEDOXOMIL/ AMLODIPINE BESILATE) (TABLET) [Suspect]
     Indication: HYPERTENSION
     Dosage: 20 MG / 5 MG, ORAL
     Route: 048
     Dates: start: 20090525, end: 20090612
  2. TRIDEC (ANTIHYPERTENSIVES) (50) [Concomitant]

REACTIONS (2)
  - BLOOD PRESSURE SYSTOLIC INCREASED [None]
  - NAUSEA [None]
